FAERS Safety Report 6241585-2 (Version None)
Quarter: 2009Q2

REPORT INFORMATION
  Report Type: 
  Country: None (occurrence: None)
  Receive Date: 20090623
  Receipt Date: 20040322
  Transmission Date: 20091009
  Serious: Yes (Hospitalization)
  Sender: FDA-Public Use
  Company Number: ES-ROCHE-362497

PATIENT
  Sex: Female
  Weight: 54 kg

DRUGS (35)
  1. MYCOPHENOLATE MOFETIL [Suspect]
     Dosage: DRUG REPORTED: MOFETIL MICOFENOLATE
     Route: 048
     Dates: start: 20040301
  2. MYCOPHENOLATE MOFETIL [Suspect]
     Route: 048
     Dates: start: 20040302
  3. MYCOPHENOLATE MOFETIL [Suspect]
     Route: 048
     Dates: start: 20040621
  4. MYCOPHENOLATE MOFETIL [Suspect]
     Route: 048
     Dates: start: 20041213
  5. MYCOPHENOLATE MOFETIL [Suspect]
     Route: 048
     Dates: start: 20050119
  6. CYCLOSPORINE [Suspect]
     Dosage: DRUG REPORTED: CYCLOSPORINE
     Route: 048
     Dates: start: 20040301
  7. CYCLOSPORINE [Suspect]
     Route: 048
     Dates: start: 20040302
  8. CYCLOSPORINE [Suspect]
     Route: 048
     Dates: start: 20040622
  9. CYCLOSPORINE [Suspect]
     Route: 048
     Dates: start: 20040705
  10. CYCLOSPORINE [Suspect]
     Route: 048
     Dates: start: 20050202, end: 20070208
  11. CYCLOSPORINE [Suspect]
     Dosage: DRUG REPORTED: CYCLOSPORINE
     Route: 048
     Dates: start: 20070209
  12. PREDNISONE [Suspect]
     Route: 048
     Dates: start: 20040302
  13. PREDNISONE [Suspect]
     Route: 048
     Dates: start: 20040506
  14. PREDNISONE [Suspect]
     Route: 048
     Dates: start: 20050119
  15. TRIMETHOPRIM + SULFAMETHOXAZOLE [Concomitant]
     Dosage: DRUG REPORTED: TRIMETHROPRIM SULFAMETOXASOLE
     Route: 048
     Dates: start: 20040302, end: 20040517
  16. TRIMETHOPRIM + SULFAMETHOXAZOLE [Concomitant]
     Route: 048
     Dates: start: 20040621
  17. RANITIDINE [Concomitant]
     Route: 048
     Dates: start: 20040302
  18. PERINDOPRIL ERBUMINE [Concomitant]
     Route: 048
     Dates: start: 20040308, end: 20040316
  19. AMLODIPINE [Concomitant]
     Route: 048
     Dates: start: 20040314, end: 20040316
  20. ASPIRIN [Concomitant]
     Route: 048
     Dates: start: 20040308, end: 20040331
  21. ASPIRIN [Concomitant]
     Route: 048
     Dates: start: 20041202
  22. BROMAZEPAM [Concomitant]
     Dosage: DRUG REPORTED: BROMAZEPAN
     Route: 048
     Dates: start: 20040405
  23. CEFTRIAXONE [Concomitant]
     Dosage: FORM: VIAL
     Route: 042
     Dates: start: 20040301, end: 20040305
  24. CLONAZEPAM [Concomitant]
     Route: 048
     Dates: start: 20040308, end: 20040826
  25. ISONIAZID [Concomitant]
     Dosage: DRUG REPORTED: ISONIACIDE
     Route: 048
     Dates: start: 20040302, end: 20041014
  26. ISONIAZID [Concomitant]
     Route: 048
     Dates: end: 20041019
  27. ISONIAZID [Concomitant]
     Route: 048
     Dates: start: 20041104
  28. METHYLPREDNISOLONE [Suspect]
     Dosage: FORM: VIAL, DRUG REPORTED: METHILPREDNISOLONE
     Route: 042
     Dates: start: 20040301, end: 20040301
  29. METHYLPREDNISOLONE [Suspect]
     Route: 042
     Dates: start: 20040313, end: 20040316
  30. PRAVASTATIN [Concomitant]
     Route: 048
     Dates: start: 20040520, end: 20040621
  31. PRAVASTATIN [Concomitant]
     Route: 048
     Dates: start: 20040909, end: 20041019
  32. VALGANCICLOVIR HCL [Concomitant]
     Dosage: DRUG REPORTED: VALGANCYCLOVIR
     Route: 048
     Dates: start: 20040302
  33. VALGANCICLOVIR HCL [Concomitant]
     Dosage: DRUG REPORTED: VALGANCYCLOVIR
     Route: 048
     Dates: end: 20040503
  34. VALGANCICLOVIR HCL [Concomitant]
     Route: 048
     Dates: start: 20040713, end: 20040902
  35. VALGANCICLOVIR HCL [Concomitant]
     Route: 048
     Dates: start: 20041011, end: 20041019

REACTIONS (2)
  - COMPLICATIONS OF TRANSPLANTED KIDNEY [None]
  - CYTOMEGALOVIRUS INFECTION [None]
